FAERS Safety Report 17252486 (Version 1)
Quarter: 2020Q1

REPORT INFORMATION
  Report Type: Spontaneous
  Country: US (occurrence: US)
  Receive Date: 20200109
  Receipt Date: 20200109
  Transmission Date: 20200409
  Serious: Yes (Other)
  Sender: FDA-Public Use
  Company Number: US-RECKITT BENCKISER HEALTHCARE INT LIMITED-RB-80379-2020

PATIENT
  Age: 63 Year
  Sex: Female

DRUGS (1)
  1. MUCINEX SINUS-MAX SEVERE CONGESTION RELIEF [Suspect]
     Active Substance: ACETAMINOPHEN\GUAIFENESIN\PHENYLEPHRINE HYDROCHLORIDE
     Indication: PRODUCT USED FOR UNKNOWN INDICATION
     Dosage: UNKNOWN, AMOUNT USED: 60 ML IN 3 DOSES
     Route: 065
     Dates: start: 20200102

REACTIONS (2)
  - Hallucinations, mixed [Recovered/Resolved]
  - Inappropriate schedule of product administration [Recovered/Resolved]
